FAERS Safety Report 24801081 (Version 1)
Quarter: 2025Q1

REPORT INFORMATION
  Report Type: Spontaneous
  Country: FR (occurrence: FR)
  Receive Date: 20250102
  Receipt Date: 20250102
  Transmission Date: 20250408
  Serious: Yes (Other)
  Sender: ELI LILLY AND COMPANY
  Company Number: None

PATIENT
  Age: 49 Year
  Sex: Female
  Weight: 92 kg

DRUGS (2)
  1. OLUMIANT [Interacting]
     Active Substance: BARICITINIB
     Indication: Psoriatic arthropathy
     Dosage: 4 MG, DAILY
     Route: 048
     Dates: start: 20241130, end: 20241204
  2. INSULIN NOS [Interacting]
     Active Substance: INSULIN NOS
     Indication: Insulin-requiring type 2 diabetes mellitus
     Route: 058

REACTIONS (3)
  - Hypoglycaemia [Recovered/Resolved]
  - Drug interaction [Recovered/Resolved]
  - Off label use [Unknown]

NARRATIVE: CASE EVENT DATE: 20241201
